FAERS Safety Report 7927139-8 (Version None)
Quarter: 2011Q4

REPORT INFORMATION
  Report Type: 
  Country: None (occurrence: None)
  Receive Date: 20111116
  Receipt Date: 20111031
  Transmission Date: 20120403
  Serious: Yes (Disabling)
  Sender: FDA-Public Use
  Company Number: 1000024575

PATIENT
  Age: 48 Year
  Sex: Female
  Weight: 57 kg

DRUGS (3)
  1. CITALOPRAM HYDROBROMIDE [Suspect]
     Dosage: 20 MG (20 MG) ORAL
     Route: 048
     Dates: start: 20110922
  2. ACETAMINOPHEN W/ CODEINE [Concomitant]
  3. VENTOLIN [Concomitant]

REACTIONS (6)
  - HYPERSENSITIVITY [None]
  - DRY MOUTH [None]
  - ABASIA [None]
  - MEMORY IMPAIRMENT [None]
  - TREMOR [None]
  - PARAESTHESIA [None]
